FAERS Safety Report 9867636 (Version 1)
Quarter: 2014Q1

REPORT INFORMATION
  Report Type: Spontaneous
  Country: US (occurrence: None)
  Receive Date: 20140203
  Receipt Date: 20140203
  Transmission Date: 20141002
  Serious: Yes (Other)
  Sender: FDA-Public Use
  Company Number: None

PATIENT
  Age: 20 Year
  Sex: Female

DRUGS (1)
  1. MONTELUKAST [Suspect]
     Dosage: 10MG QPM PO
     Route: 048
     Dates: start: 20140129

REACTIONS (3)
  - Cold sweat [None]
  - Feeling abnormal [None]
  - Depression [None]
